FAERS Safety Report 8262021-0 (Version None)
Quarter: 2012Q2

REPORT INFORMATION
  Report Type: 
  Country: None (occurrence: None)
  Receive Date: 20120402
  Receipt Date: 20120323
  Transmission Date: 20120825
  Serious: Yes (Hospitalization)
  Sender: FDA-Public Use
  Company Number: 2012SP016245

PATIENT
  Age: 55 Year
  Sex: Male

DRUGS (1)
  1. REMERON [Suspect]
     Indication: PRODUCT USED FOR UNKNOWN INDICATION
     Dosage: 30 MG;
     Dates: start: 20111101, end: 20111101

REACTIONS (8)
  - SOPOR [None]
  - AGITATION [None]
  - CONFUSIONAL STATE [None]
  - DISORIENTATION [None]
  - ACCIDENTAL EXPOSURE [None]
  - HYPERKINESIA [None]
  - AMNESIA [None]
  - OVERDOSE [None]
